FAERS Safety Report 11352258 (Version 1)
Quarter: 2015Q3

REPORT INFORMATION
  Report Type: Spontaneous
  Country: US (occurrence: US)
  Receive Date: 20150807
  Receipt Date: 20150807
  Transmission Date: 20151125
  Serious: No
  Sender: FDA-Public Use
  Company Number: US-JNJFOC-20150502397

PATIENT
  Sex: Male

DRUGS (3)
  1. CRESTOR [Concomitant]
     Active Substance: ROSUVASTATIN CALCIUM
     Indication: BLOOD CHOLESTEROL
     Route: 065
  2. MENS ROGAINE EXTRA STRENGTH [Suspect]
     Active Substance: MINOXIDIL
     Route: 061
  3. MENS ROGAINE EXTRA STRENGTH [Suspect]
     Active Substance: MINOXIDIL
     Indication: ALOPECIA
     Dosage: STARTED ABOUT 3 MONTHS AGO
     Route: 061

REACTIONS (3)
  - Irritability [Recovered/Resolved]
  - Inappropriate schedule of drug administration [Unknown]
  - Erythema [Recovered/Resolved]
